FAERS Safety Report 12802326 (Version 2)
Quarter: 2018Q2

REPORT INFORMATION
  Report Type: Spontaneous
  Country: US (occurrence: US)
  Receive Date: 20161003
  Receipt Date: 20180413
  Transmission Date: 20180711
  Serious: Yes (Other)
  Sender: FDA-Public Use
  Company Number: US-JAZZ-2016-US-012398

PATIENT
  Sex: Female

DRUGS (48)
  1. XYREM [Suspect]
     Active Substance: SODIUM OXYBATE
     Dosage: 4.5 G, BID
     Route: 048
     Dates: start: 201406
  2. AUBAGIO [Concomitant]
     Active Substance: TERIFLUNOMIDE
  3. BACLOFEN. [Concomitant]
     Active Substance: BACLOFEN
  4. FLUCONAZOLE. [Concomitant]
     Active Substance: FLUCONAZOLE
  5. OXYCODONE HCL IR [Concomitant]
     Active Substance: OXYCODONE HYDROCHLORIDE
  6. PERCOCET [Concomitant]
     Active Substance: ACETAMINOPHEN\OXYCODONE HYDROCHLORIDE
  7. FISH OIL [Concomitant]
     Active Substance: FISH OIL
  8. FOLIC ACID. [Concomitant]
     Active Substance: FOLIC ACID
  9. NIACIN ER [Concomitant]
     Active Substance: NIACIN
  10. GABAPENTIN. [Concomitant]
     Active Substance: GABAPENTIN
  11. ZOLPIDEM TARTRATE. [Concomitant]
     Active Substance: ZOLPIDEM TARTRATE
  12. SYNTHROID [Concomitant]
     Active Substance: LEVOTHYROXINE SODIUM
  13. BRINTELLIX [Concomitant]
     Active Substance: VORTIOXETINE HYDROBROMIDE
  14. MAGNESIUM GLUCONATE [Concomitant]
     Active Substance: MAGNESIUM GLUCONATE
  15. VITAMIN B COMPLEX [Concomitant]
     Active Substance: CYANOCOBALAMIN\DEXPANTHENOL\NIACINAMIDE\PYRIDOXINE HYDROCHLORIDE\RIBOFLAVIN 5^-PHOSPHATE SODIUM\THIAMINE HYDROCHLORIDE\VITAMIN B COMPLEX
  16. POTASSIUM CL ER [Concomitant]
     Active Substance: POTASSIUM CHLORIDE
  17. SAPHRIS [Concomitant]
     Active Substance: ASENAPINE MALEATE
  18. CALCIUM [Concomitant]
     Active Substance: CALCIUM
  19. XYREM [Suspect]
     Active Substance: SODIUM OXYBATE
     Indication: NARCOLEPSY
     Dosage: 3 G, BID
     Route: 048
     Dates: start: 200703, end: 200705
  20. VITAMIN C [Concomitant]
     Active Substance: ASCORBIC ACID
  21. TRAZODONE [Concomitant]
     Active Substance: TRAZODONE HYDROCHLORIDE
  22. VIIBRYD [Concomitant]
     Active Substance: VILAZODONE HYDROCHLORIDE
  23. TECFIDERA [Concomitant]
     Active Substance: DIMETHYL FUMARATE
  24. AMRIX [Concomitant]
     Active Substance: CYCLOBENZAPRINE HYDROCHLORIDE
  25. ADDERALL XR [Concomitant]
     Active Substance: AMPHETAMINE ASPARTATE\AMPHETAMINE SULFATE\DEXTROAMPHETAMINE SACCHARATE\DEXTROAMPHETAMINE SULFATE
  26. LATUDA [Concomitant]
     Active Substance: LURASIDONE HYDROCHLORIDE
  27. ZOLOFT [Concomitant]
     Active Substance: SERTRALINE HYDROCHLORIDE
  28. XYREM [Suspect]
     Active Substance: SODIUM OXYBATE
     Dosage: 4.5 G, BID
     Route: 048
     Dates: start: 200804, end: 2010
  29. CRANBERRY CONCENTRATE [Concomitant]
     Active Substance: CRANBERRY CONCENTRATE
  30. CYTOMEL [Concomitant]
     Active Substance: LIOTHYRONINE SODIUM
  31. VITAMIN D3 [Concomitant]
     Active Substance: CHOLECALCIFEROL
  32. ASPIRIN EC [Concomitant]
     Active Substance: ASPIRIN
  33. FLAGYL ER [Concomitant]
     Active Substance: METRONIDAZOLE
  34. PRILOSEC [Concomitant]
     Active Substance: OMEPRAZOLE MAGNESIUM
  35. DICLOFENAC SODIUM DR [Concomitant]
     Active Substance: DICLOFENAC SODIUM
  36. TEGRETOL XR [Concomitant]
     Active Substance: CARBAMAZEPINE
  37. XYREM [Suspect]
     Active Substance: SODIUM OXYBATE
     Dosage: 4.5 G, BID
     Route: 048
     Dates: start: 201101, end: 2012
  38. TIZANIDINE HCL [Concomitant]
     Active Substance: TIZANIDINE HYDROCHLORIDE
  39. ZINC GLUCONATE [Concomitant]
     Active Substance: ZINC GLUCONATE
  40. NORCO [Concomitant]
     Active Substance: ACETAMINOPHEN\HYDROCODONE BITARTRATE
  41. XYREM [Suspect]
     Active Substance: SODIUM OXYBATE
     Indication: CATAPLEXY
     Dosage: 3.25 G, BID
     Route: 048
     Dates: start: 200705, end: 200804
  42. XYREM [Suspect]
     Active Substance: SODIUM OXYBATE
     Dosage: 3 G, BID
     Route: 048
     Dates: start: 201012, end: 201101
  43. EQUETRO [Concomitant]
     Active Substance: CARBAMAZEPINE
  44. PRENATAL [Concomitant]
     Active Substance: VITAMINS
  45. KEPPRA [Concomitant]
     Active Substance: LEVETIRACETAM
  46. COPAXONE [Concomitant]
     Active Substance: GLATIRAMER ACETATE
  47. ALPRAZOLAM. [Concomitant]
     Active Substance: ALPRAZOLAM
  48. KLONOPIN [Concomitant]
     Active Substance: CLONAZEPAM

REACTIONS (1)
  - Autoimmune thyroiditis [Not Recovered/Not Resolved]
